FAERS Safety Report 22609240 (Version 1)
Quarter: 2023Q2

REPORT INFORMATION
  Report Type: Spontaneous
  Country: CN (occurrence: CN)
  Receive Date: 20230616
  Receipt Date: 20230616
  Transmission Date: 20230722
  Serious: Yes (Death, Other)
  Sender: FDA-Public Use
  Company Number: CN-SA-2023SA181201

PATIENT
  Age: 17 Year
  Sex: Male

DRUGS (19)
  1. ANTI-THYMOCYTE GLOBULIN (RABBIT) NOS [Suspect]
     Active Substance: LAPINE T-LYMPHOCYTE IMMUNE GLOBULIN
     Indication: Prophylaxis against graft versus host disease
     Dosage: UNK
     Dates: start: 2016
  2. METHOTREXATE [Suspect]
     Active Substance: METHOTREXATE
     Indication: Prophylaxis against graft versus host disease
     Dosage: UNK
     Dates: start: 2015, end: 2015
  3. METHOTREXATE [Suspect]
     Active Substance: METHOTREXATE
     Indication: Acute lymphocytic leukaemia
     Dosage: UNK
     Dates: start: 2016
  4. METHOTREXATE [Suspect]
     Active Substance: METHOTREXATE
     Dosage: 30 MG/KG
     Dates: start: 2017
  5. PREDNISONE [Suspect]
     Active Substance: PREDNISONE
     Indication: Chronic graft versus host disease
     Dosage: 1.0 MG/KG
     Dates: start: 2017
  6. METHYLPREDNISOLONE [Suspect]
     Active Substance: METHYLPREDNISOLONE
     Indication: Posterior reversible encephalopathy syndrome
     Dosage: 250 MG, BID
     Route: 042
     Dates: start: 2017, end: 2017
  7. METHYLPREDNISOLONE [Suspect]
     Active Substance: METHYLPREDNISOLONE
     Dosage: HALVED EVERY THREE DAYS UNTIL DISCONTINUATION
     Route: 042
     Dates: start: 2017, end: 2017
  8. CLOFARABINE [Suspect]
     Active Substance: CLOFARABINE
     Indication: Acute lymphocytic leukaemia
     Dosage: 52 MG/M2
     Dates: start: 201608
  9. BUSULFAN [Suspect]
     Active Substance: BUSULFAN
     Indication: Prophylaxis against graft versus host disease
     Dosage: UNK
     Dates: start: 2016
  10. CYCLOSPORINE [Suspect]
     Active Substance: CYCLOSPORINE
     Indication: Prophylaxis against graft versus host disease
     Dosage: UNK
     Dates: start: 2016, end: 2017
  11. CYCLOSPORINE [Suspect]
     Active Substance: CYCLOSPORINE
     Indication: Chronic graft versus host disease
     Dosage: 10% REDUCTION PER WEEK
     Dates: start: 2017, end: 2017
  12. CYCLOSPORINE [Suspect]
     Active Substance: CYCLOSPORINE
     Dosage: 70 MG, QD
     Dates: start: 2017, end: 2017
  13. CYCLOSPORINE [Suspect]
     Active Substance: CYCLOSPORINE
     Dosage: 170 MG, QD
     Route: 042
     Dates: start: 2017, end: 2017
  14. MYCOPHENOLATE MOFETIL [Suspect]
     Active Substance: MYCOPHENOLATE MOFETIL
     Indication: Prophylaxis against graft versus host disease
     Dosage: UNK
     Dates: start: 2016
  15. MYCOPHENOLATE MOFETIL [Suspect]
     Active Substance: MYCOPHENOLATE MOFETIL
     Indication: Chronic graft versus host disease
  16. MERCAPTOPURINE [Suspect]
     Active Substance: MERCAPTOPURINE
     Indication: Acute lymphocytic leukaemia
     Dosage: UNK
     Dates: start: 2015, end: 2015
  17. TACROLIMUS [Suspect]
     Active Substance: TACROLIMUS
     Indication: Chronic graft versus host disease
     Dosage: BLOOD CONCENTRATION MAINTAINED AT 10 NG/ML
     Dates: start: 2017
  18. BASILIXIMAB [Suspect]
     Active Substance: BASILIXIMAB
     Dosage: PLUS 5 TIMES
     Dates: start: 2017
  19. CYCLOPHOSPHAMIDE [Suspect]
     Active Substance: CYCLOPHOSPHAMIDE

REACTIONS (11)
  - Subarachnoid haemorrhage [Fatal]
  - Headache [Fatal]
  - Nausea [Fatal]
  - Vomiting [Fatal]
  - Intracranial aneurysm [Unknown]
  - Posterior reversible encephalopathy syndrome [Recovered/Resolved]
  - Status epilepticus [Recovered/Resolved]
  - Cerebral fungal infection [Recovering/Resolving]
  - Sluggishness [Recovering/Resolving]
  - Muscular weakness [Recovering/Resolving]
  - Off label use [Unknown]

NARRATIVE: CASE EVENT DATE: 20160101
